FAERS Safety Report 13305141 (Version 1)
Quarter: 2017Q1

REPORT INFORMATION
  Report Type: Spontaneous
  Country: US (occurrence: US)
  Receive Date: 20170307
  Receipt Date: 20170307
  Transmission Date: 20170428
  Serious: No
  Sender: FDA-Public Use
  Company Number: None

PATIENT
  Sex: Female

DRUGS (1)
  1. CAPECITABINE 500 MG ACCORD [Suspect]
     Active Substance: CAPECITABINE
     Indication: PRODUCT USED FOR UNKNOWN INDICATION
     Dosage: 1500 MG BID FOR 14 DAYS THEN 1 WEEK OFF PO
     Route: 048
     Dates: start: 20170131, end: 20170304

REACTIONS (2)
  - Diarrhoea [None]
  - Vomiting [None]
